FAERS Safety Report 8248179-8 (Version None)
Quarter: 2012Q1

REPORT INFORMATION
  Report Type: 
  Country: None (occurrence: None)
  Receive Date: 20120330
  Receipt Date: 20120322
  Transmission Date: 20120608
  Serious: Yes (Hospitalization)
  Sender: FDA-Public Use
  Company Number: JP-VERTEX PHARMACEUTICALS INC.-AE-2012-003682

PATIENT
  Age: 65 Year
  Sex: Female

DRUGS (8)
  1. OLMESARTAN MEDOXOMIL [Concomitant]
  2. LANSOPRAZOLE [Concomitant]
  3. PEGINTERFERON [Concomitant]
     Indication: HEPATITIS C
     Route: 058
     Dates: start: 20120117, end: 20120303
  4. TELAVIC (TELAPREVIR) [Suspect]
     Indication: HEPATITIS C
     Route: 048
     Dates: start: 20120117, end: 20120303
  5. LENDEM [Concomitant]
  6. RIBAVIRIN [Concomitant]
     Indication: HEPATITIS C
     Route: 048
     Dates: start: 20120117, end: 20120227
  7. RIBAVIRIN [Concomitant]
     Route: 048
     Dates: start: 20120227, end: 20120303
  8. URSO 250 [Concomitant]

REACTIONS (3)
  - VOMITING [None]
  - DECREASED APPETITE [None]
  - HAEMOGLOBIN DECREASED [None]
